FAERS Safety Report 11985515 (Version 1)
Quarter: 2016Q1

REPORT INFORMATION
  Report Type: Not Available
  Country: DE (occurrence: NL)
  Receive Date: 20160201
  Receipt Date: 20160201
  Transmission Date: 20160526
  Serious: Yes (Death)
  Sender: FDA-Public Use
  Company Number: DE-ANIPHARMA-2015-NL-000001

PATIENT
  Age: 73 Year
  Sex: Female

DRUGS (11)
  1. MACROGOL [Concomitant]
     Active Substance: POLYETHYLENE GLYCOLS
     Dosage: UNK
     Route: 048
     Dates: start: 20141113
  2. NOZINAN [Concomitant]
     Active Substance: LEVOMEPROMAZINE
     Dosage: 25 MG PO QD
     Route: 048
     Dates: start: 20111113
  3. DEXAMETHASONE. [Suspect]
     Active Substance: DEXAMETHASONE
     Dosage: 4 MG PO QD
     Route: 048
     Dates: start: 20150917
  4. ANTAGEL APOTEX [Concomitant]
     Dosage: UNK
     Route: 048
     Dates: start: 20150905
  5. PREGABALIN. [Concomitant]
     Active Substance: PREGABALIN
     Dosage: 75 MG PO QD
     Route: 048
     Dates: start: 20151014
  6. KALCIPOS-D [Concomitant]
     Active Substance: CALCIUM CARBONATE\CHOLECALCIFEROL
     Dosage: 500MG/800IE PO QD
     Route: 048
     Dates: start: 20140303
  7. FENTANYL. [Concomitant]
     Active Substance: FENTANYL
     Route: 061
  8. FLUVOXAMINE MALEATE 50 MG [Suspect]
     Active Substance: FLUVOXAMINE MALEATE
     Dosage: 100MG PO QD
     Route: 048
     Dates: start: 20110526, end: 20151030
  9. ACETYLCYSTEINE. [Concomitant]
     Active Substance: ACETYLCYSTEINE
  10. MEGESTROL ACETATE. [Concomitant]
     Active Substance: MEGESTROL ACETATE
     Dosage: 160 MG PO QD
     Route: 048
     Dates: start: 20140104
  11. OMEPRAZOLE. [Concomitant]
     Active Substance: OMEPRAZOLE
     Dosage: 40 MG PO QD
     Route: 048
     Dates: start: 20150108

REACTIONS (3)
  - Drug interaction [Not Recovered/Not Resolved]
  - Gastric haemorrhage [Unknown]
  - Death [Fatal]

NARRATIVE: CASE EVENT DATE: 20151030
